FAERS Safety Report 6753339-9 (Version None)
Quarter: 2010Q2

REPORT INFORMATION
  Report Type: 
  Country: None (occurrence: None)
  Receive Date: 20100603
  Receipt Date: 20100521
  Transmission Date: 20101027
  Serious: Yes (Hospitalization, Other)
  Sender: FDA-Public Use
  Company Number: ES-ELI_LILLY_AND_COMPANY-ES201005006697

PATIENT
  Sex: Female
  Weight: 60 kg

DRUGS (5)
  1. FORTEO [Suspect]
     Indication: OSTEOPOROSIS
     Dosage: 20 UG, DAILY (1/D)
     Route: 058
     Dates: start: 20091201, end: 20100201
  2. ENANTYUM [Concomitant]
     Indication: PAIN
     Dosage: 25 MG, AS NEEDED
     Route: 048
     Dates: start: 20100201
  3. OMEPRAZOLE [Concomitant]
     Dosage: 20 MG, DAILY (1/D)
     Route: 048
  4. HYDROMORPHONE HCL [Concomitant]
     Indication: PAIN
     Dosage: 16 MG, 3/D
     Route: 048
     Dates: start: 20091201, end: 20100501
  5. LYRICA [Concomitant]
     Indication: PAIN
     Dosage: 75 MG, 3/D
     Route: 048
     Dates: start: 20091201, end: 20100501

REACTIONS (1)
  - MULTIPLE MYELOMA [None]
